FAERS Safety Report 4664309-9 (Version None)
Quarter: 2005Q2

REPORT INFORMATION
  Report Type: 
  Country: None (occurrence: None)
  Receive Date: 20050518
  Receipt Date: 20050413
  Transmission Date: 20051028
  Serious: Yes (Other)
  Sender: FDA-Public Use
  Company Number: PHEH2005US04323

PATIENT
  Age: 83 Year
  Sex: Female

DRUGS (3)
  1. ANALGESICS [Concomitant]
  2. DIOVAN [Suspect]
     Indication: HYPERTENSION
     Route: 048
  3. DIOVAN HCT [Suspect]
     Indication: HYPERTENSION

REACTIONS (5)
  - ABDOMINAL PAIN UPPER [None]
  - DRUG INEFFECTIVE [None]
  - LITHOTRIPSY [None]
  - NAUSEA [None]
  - NEPHROLITHIASIS [None]
